FAERS Safety Report 4785306-9 (Version None)
Quarter: 2005Q3

REPORT INFORMATION
  Report Type: 
  Country: None (occurrence: None)
  Receive Date: 20050914
  Receipt Date: 20040722
  Transmission Date: 20060218
  Serious: Yes (Other)
  Sender: FDA-Public Use
  Company Number: 163-20785-04070506

PATIENT
  Age: 71 Year
  Sex: Male
  Weight: 120 kg

DRUGS (8)
  1. THALOMID [Suspect]
     Indication: PROSTATE CANCER
     Dosage: 100 MG, QD, ORAL
     Route: 048
     Dates: start: 20010207, end: 20030512
  2. LEUPROLIDE ACETATE [Suspect]
     Indication: PROSTATE CANCER
     Dosage: INTRAMUSCULAR
     Route: 030
     Dates: start: 20010207, end: 20030512
  3. PROTRIAZIDE (DYAZIDE) [Concomitant]
  4. VIOXX [Concomitant]
  5. CITRACEL (CALCIUM CITRATE) [Concomitant]
  6. MELOXICAM (MELOXICAM) [Concomitant]
  7. NEXIUM [Concomitant]
  8. GOSERELIN (GOSERELIN) (UNKNOWN) [Suspect]
     Indication: PROSTATE CANCER
     Dosage: SUBCUTANEOUS
     Route: 058
     Dates: start: 20010207, end: 20030512

REACTIONS (1)
  - LUNG ADENOCARCINOMA [None]
